FAERS Safety Report 25894013 (Version 2)
Quarter: 2025Q4

REPORT INFORMATION
  Report Type: Report from Study
  Country: US (occurrence: US)
  Receive Date: 20251008
  Receipt Date: 20251020
  Transmission Date: 20260117
  Serious: Yes (Other)
  Sender: ACADIA PHARMACEUTICALS
  Company Number: US-ACADIA PHARMACEUTICALS INC.-ACA-2025-PIM-010896

PATIENT
  Age: 57 Year
  Sex: Female

DRUGS (21)
  1. NUPLAZID [Suspect]
     Active Substance: PIMAVANSERIN TARTRATE
     Indication: Parkinson^s disease psychosis
     Dosage: 34 MILLIGRAM, QD
     Route: 048
     Dates: start: 20250711, end: 20251013
  2. LEVOTHYROXINE [Concomitant]
     Active Substance: LEVOTHYROXINE
  3. AMANTADINE [Concomitant]
     Active Substance: AMANTADINE
  4. AMLODIPINE [Concomitant]
     Active Substance: AMLODIPINE BESYLATE
  5. ASPIRIN [Concomitant]
     Active Substance: ASPIRIN
  6. VITAMIN B COMPLEX [Concomitant]
     Active Substance: CYANOCOBALAMIN\DEXPANTHENOL\NIACINAMIDE\PYRIDOXINE HYDROCHLORIDE\RIBOFLAVIN 5^-PHOSPHATE SODIUM\THIA
  7. SINEMET [Concomitant]
     Active Substance: CARBIDOPA\LEVODOPA
     Dosage: UNK (25/250)
  8. ZYRTEC [Concomitant]
     Active Substance: CETIRIZINE HYDROCHLORIDE
  9. COLACE [Concomitant]
     Active Substance: DOCUSATE SODIUM
  10. OLOPATADINE [Concomitant]
     Active Substance: OLOPATADINE
  11. MULTI COMPLETE [Concomitant]
  12. IRON [Concomitant]
     Active Substance: IRON
  13. METOPROLOL [Concomitant]
     Active Substance: METOPROLOL
  14. MELATONIN [Concomitant]
     Active Substance: MELATONIN
  15. LISINOPRIL [Concomitant]
     Active Substance: LISINOPRIL
  16. JARDIANCE [Concomitant]
     Active Substance: EMPAGLIFLOZIN
  17. LEVEMIR [Concomitant]
     Active Substance: INSULIN DETEMIR
  18. FOLIC ACID [Concomitant]
     Active Substance: FOLIC ACID
  19. FAMOTIDINE [Concomitant]
     Active Substance: FAMOTIDINE
  20. NOVOLIN N [Concomitant]
     Active Substance: INSULIN HUMAN
     Dosage: UNK(100 UNIT)
  21. Dexcom G7 sensor MIS [Concomitant]
     Dosage: UNK(G7 SPONSOR MS)

REACTIONS (3)
  - Hallucination [Not Recovered/Not Resolved]
  - Feeling abnormal [Not Recovered/Not Resolved]
  - Drug ineffective [Not Recovered/Not Resolved]

NARRATIVE: CASE EVENT DATE: 20250711
